FAERS Safety Report 8124828-X (Version None)
Quarter: 2012Q1

REPORT INFORMATION
  Report Type: 
  Country: None (occurrence: None)
  Receive Date: 20120209
  Receipt Date: 20120207
  Transmission Date: 20120608
  Serious: Yes (Other)
  Sender: FDA-Public Use
  Company Number: US-PFIZER INC-2012033720

PATIENT
  Sex: Female
  Weight: 86.1 kg

DRUGS (3)
  1. SYNTHROID [Concomitant]
     Indication: HYPERTHYROIDISM
     Dosage: UNK
  2. WARFARIN [Concomitant]
     Dosage: UNK
  3. TIKOSYN [Suspect]
     Indication: CARDIAC ABLATION
     Dosage: UNK, 2X/DAY
     Route: 048
     Dates: start: 20110301

REACTIONS (1)
  - UTERINE CANCER [None]
